FAERS Safety Report 7938705-8 (Version None)
Quarter: 2011Q4

REPORT INFORMATION
  Report Type: 
  Country: None (occurrence: None)
  Receive Date: 20111124
  Receipt Date: 20111120
  Transmission Date: 20120403
  Serious: Yes (Other)
  Sender: FDA-Public Use
  Company Number: AR-BRISTOL-MYERS SQUIBB COMPANY-15824527

PATIENT
  Sex: Female

DRUGS (1)
  1. SPRYCEL [Suspect]

REACTIONS (1)
  - CYTOGENETIC ABNORMALITY [None]
